FAERS Safety Report 15346544 (Version 1)
Quarter: 2018Q3

REPORT INFORMATION
  Report Type: Spontaneous
  Country: US (occurrence: US)
  Receive Date: 20180904
  Receipt Date: 20180904
  Transmission Date: 20181010
  Serious: No
  Sender: FDA-Public Use
  Company Number: US-ASTRAZENECA-2018SF08527

PATIENT
  Age: 22352 Day
  Sex: Male

DRUGS (6)
  1. SEROQUEL [Suspect]
     Active Substance: QUETIAPINE FUMARATE
     Indication: BIPOLAR II DISORDER
     Route: 048
  2. SEROQUEL [Suspect]
     Active Substance: QUETIAPINE FUMARATE
     Indication: BIPOLAR II DISORDER
     Dosage: WENT TO 50MG
     Route: 048
  3. GENERIC NORVASC [Concomitant]
     Indication: BLOOD PRESSURE ABNORMAL
     Route: 048
  4. SEROQUEL [Suspect]
     Active Substance: QUETIAPINE FUMARATE
     Indication: BIPOLAR II DISORDER
     Dosage: QUETIAPINE 25MG THE FIRST NIGHT
     Route: 048
     Dates: start: 20180816
  5. SEROQUEL [Suspect]
     Active Substance: QUETIAPINE FUMARATE
     Indication: BIPOLAR II DISORDER
     Dosage: REDUCED HER DOSE TO 25MG
     Route: 048
     Dates: start: 20180818
  6. TEGRETOL [Concomitant]
     Active Substance: CARBAMAZEPINE
     Indication: AFFECTIVE DISORDER
     Dosage: HER TOTAL DAILY DOSE OF TEGRETOL IS 600MG BUT TAKES 200MG DURING THE DAY AND 400MG AT NIGHT
     Route: 048

REACTIONS (16)
  - Memory impairment [Unknown]
  - Syncope [Unknown]
  - Headache [Not Recovered/Not Resolved]
  - Limb injury [Unknown]
  - Confusional state [Recovered/Resolved]
  - Contusion [Not Recovered/Not Resolved]
  - Blood cholesterol increased [Unknown]
  - Drug dose omission [Unknown]
  - Intentional product misuse [Unknown]
  - Fall [Unknown]
  - Anxiety [Unknown]
  - Condition aggravated [Unknown]
  - White blood cell count decreased [Unknown]
  - Pain in extremity [Not Recovered/Not Resolved]
  - Agitation [Unknown]
  - Mood altered [Not Recovered/Not Resolved]

NARRATIVE: CASE EVENT DATE: 20180818
